FAERS Safety Report 5640613-2 (Version None)
Quarter: 2008Q1

REPORT INFORMATION
  Report Type: 
  Country: None (occurrence: None)
  Receive Date: 20080227
  Receipt Date: 20080218
  Transmission Date: 20080703
  Serious: Yes (Other)
  Sender: FDA-Public Use
  Company Number: PHHY2008AU01961

PATIENT
  Age: 55 Year
  Sex: Female

DRUGS (1)
  1. AREDIA [Suspect]
     Indication: MULTIPLE MYELOMA

REACTIONS (4)
  - CAST APPLICATION [None]
  - FOOT FRACTURE [None]
  - IMPAIRED HEALING [None]
  - LIMB INJURY [None]
